FAERS Safety Report 6998360-0 (Version None)
Quarter: 2010Q3

REPORT INFORMATION
  Report Type: 
  Country: None (occurrence: None)
  Receive Date: 20100920
  Receipt Date: 20100908
  Transmission Date: 20110219
  Serious: No
  Sender: FDA-Public Use
  Company Number: US-JNJFOC-20100903182

PATIENT
  Sex: Female
  Weight: 63.5 kg

DRUGS (6)
  1. FENTANYL-100 [Suspect]
     Indication: PAIN
     Route: 062
  2. FENTANYL [Suspect]
     Indication: PAIN
     Route: 062
  3. NEURONTIN [Concomitant]
     Indication: PAIN
     Route: 048
  4. SOMA [Concomitant]
     Indication: MUSCLE SPASMS
     Route: 048
  5. VICODIN [Concomitant]
     Indication: PAIN
     Route: 048
  6. TYLENOL W/ CODEINE [Concomitant]
     Indication: PAIN
     Route: 048

REACTIONS (2)
  - DRUG PRESCRIBING ERROR [None]
  - WRONG TECHNIQUE IN DRUG USAGE PROCESS [None]
